FAERS Safety Report 8157015-X (Version None)
Quarter: 2012Q1

REPORT INFORMATION
  Report Type: 
  Country: None (occurrence: None)
  Receive Date: 20120222
  Receipt Date: 20120217
  Transmission Date: 20120608
  Serious: Yes (Life-Threatening)
  Sender: FDA-Public Use
  Company Number: JP-SANOFI-AVENTIS-2012SA011121

PATIENT
  Age: 61 Year
  Sex: Male
  Weight: 63 kg

DRUGS (7)
  1. ACE INHIBITOR NOS [Concomitant]
  2. CALCIUM CHANNEL BLOCKERS [Concomitant]
  3. INSULIN GLARGINE [Suspect]
     Dosage: DOSE:11 UNIT(S)
     Route: 065
     Dates: start: 20081020
  4. HMG COA REDUCTASE INHIBITORS [Concomitant]
  5. INSULIN ASPART [Suspect]
     Dosage: DOSE:24 UNIT(S)
     Route: 065
     Dates: start: 20081020
  6. BETA BLOCKING AGENTS [Concomitant]
  7. PLATELET AGGREGATION INHIBITORS [Concomitant]

REACTIONS (1)
  - NEOPLASM MALIGNANT [None]
